FAERS Safety Report 23973573 (Version 1)
Quarter: 2024Q2

REPORT INFORMATION
  Report Type: Spontaneous
  Country: US (occurrence: None)
  Receive Date: 20240613
  Receipt Date: 20240613
  Transmission Date: 20240716
  Serious: No
  Sender: FDA-Public Use
  Company Number: US-MDD US Operations-MDD202401-000315

PATIENT
  Age: 80 Year
  Sex: Male

DRUGS (4)
  1. APOKYN [Suspect]
     Active Substance: APOMORPHINE HYDROCHLORIDE
     Indication: Parkinson^s disease
     Dosage: 30MG/3 ML
     Route: 058
     Dates: start: 20240125
  2. APOKYN [Suspect]
     Active Substance: APOMORPHINE HYDROCHLORIDE
     Route: 058
     Dates: start: 20240125
  3. CARBIDOPA\LEVODOPA [Concomitant]
     Active Substance: CARBIDOPA\LEVODOPA
     Dosage: NOT PROVIDED
  4. COMTAN [Concomitant]
     Active Substance: ENTACAPONE
     Dosage: NOT PROVIDED

REACTIONS (8)
  - Hallucination [Unknown]
  - Dyskinesia [Unknown]
  - Nausea [Unknown]
  - Somnolence [Unknown]
  - Somnolence [Recovered/Resolved]
  - Yawning [Recovered/Resolved]
  - Nausea [Recovered/Resolved]
  - Drug ineffective [Unknown]

NARRATIVE: CASE EVENT DATE: 20240125
